FAERS Safety Report 4667731-X (Version None)
Quarter: 2005Q2

REPORT INFORMATION
  Report Type: 
  Country: None (occurrence: None)
  Receive Date: 20050520
  Receipt Date: 20050512
  Transmission Date: 20051028
  Serious: Yes (Death)
  Sender: FDA-Public Use
  Company Number: US-MERCK-0505USA01629

PATIENT

DRUGS (2)
  1. PRINIVIL [Suspect]
     Route: 048
  2. PRINIVIL [Suspect]
     Route: 048

REACTIONS (5)
  - DEATH [None]
  - DRUG TOXICITY [None]
  - HYPERTENSION [None]
  - INCORRECT DOSE ADMINISTERED [None]
  - UNEVALUABLE EVENT [None]
